FAERS Safety Report 16628825 (Version 2)
Quarter: 2021Q3

REPORT INFORMATION
  Report Type: Report from Study
  Country: None (occurrence: CA)
  Receive Date: 20190725
  Receipt Date: 20210706
  Transmission Date: 20211014
  Serious: Yes (Other)
  Sender: FDA-Public Use
  Company Number: CA-ABBVIE-17P-028-2020016-00

PATIENT
  Sex: Female

DRUGS (6)
  1. LIDOCAINE. [Concomitant]
     Active Substance: LIDOCAINE
     Indication: HAEMORRHOIDS
  2. CORTISONE [Concomitant]
     Active Substance: CORTISONE
     Indication: ECZEMA
  3. LIDOCAINE. [Concomitant]
     Active Substance: LIDOCAINE
     Indication: ANAL FISSURE
  4. CORTISONE [Concomitant]
     Active Substance: CORTISONE
     Indication: PSORIASIS
  5. HUMIRA [Suspect]
     Active Substance: ADALIMUMAB
     Indication: CROHN^S DISEASE
     Route: 058
     Dates: start: 20170523
  6. HUMIRA [Suspect]
     Active Substance: ADALIMUMAB
     Route: 058

REACTIONS (22)
  - General physical health deterioration [Not Recovered/Not Resolved]
  - Restlessness [Unknown]
  - Aphthous ulcer [Unknown]
  - Diarrhoea [Unknown]
  - Abdominal distension [Unknown]
  - Disability [Unknown]
  - Impaired quality of life [Not Recovered/Not Resolved]
  - Fibromyalgia [Unknown]
  - Blister [Unknown]
  - Oedema peripheral [Recovering/Resolving]
  - Pain [Not Recovered/Not Resolved]
  - Cholestasis [Not Recovered/Not Resolved]
  - Haemorrhoids [Not Recovered/Not Resolved]
  - Constipation [Not Recovered/Not Resolved]
  - Bedridden [Not Recovered/Not Resolved]
  - Arthralgia [Not Recovered/Not Resolved]
  - Crohn^s disease [Not Recovered/Not Resolved]
  - Iron deficiency [Not Recovered/Not Resolved]
  - Polymicrogyria [Unknown]
  - Drug level increased [Not Recovered/Not Resolved]
  - Menstrual disorder [Recovering/Resolving]
  - Malaise [Not Recovered/Not Resolved]

NARRATIVE: CASE EVENT DATE: 2017
